FAERS Safety Report 13389828 (Version 2)
Quarter: 2021Q1

REPORT INFORMATION
  Report Type: Spontaneous
  Country: US (occurrence: US)
  Receive Date: 20170331
  Receipt Date: 20210330
  Transmission Date: 20210419
  Serious: No
  Sender: FDA-Public Use
  Company Number: PHEH2015US001945

PATIENT
  Sex: Female

DRUGS (6)
  1. STARLIX [Suspect]
     Active Substance: NATEGLINIDE
     Indication: PRODUCT USED FOR UNKNOWN INDICATION
     Dosage: 120 MG, TID
     Route: 048
  2. METFORMIN [Suspect]
     Active Substance: METFORMIN HYDROCHLORIDE
     Indication: PRODUCT USED FOR UNKNOWN INDICATION
     Route: 065
  3. CORTISONE [Suspect]
     Active Substance: CORTISONE
     Indication: PRODUCT USED FOR UNKNOWN INDICATION
     Route: 065
  4. STARLIX [Suspect]
     Active Substance: NATEGLINIDE
     Dosage: UNK
     Route: 048
     Dates: start: 20141028
  5. STARLIX [Suspect]
     Active Substance: NATEGLINIDE
     Dosage: 60 MG, BID, 2 TABLETS
     Route: 065
  6. LEVEMIR [Suspect]
     Active Substance: INSULIN DETEMIR
     Indication: PRODUCT USED FOR UNKNOWN INDICATION
     Dosage: UNK, QHS (29 UNITS)
     Route: 058

REACTIONS (9)
  - Osteoarthritis [Recovering/Resolving]
  - Blood pressure decreased [Unknown]
  - Hypersensitivity [Unknown]
  - Weight decreased [Unknown]
  - Blood glucose decreased [Unknown]
  - Blood glucose increased [Unknown]
  - Blood pressure increased [Unknown]
  - Vitamin D decreased [Recovering/Resolving]
  - Drug ineffective [Unknown]
